FAERS Safety Report 19514731 (Version 1)
Quarter: 2021Q3

REPORT INFORMATION
  Report Type: Spontaneous
  Country: JP (occurrence: JP)
  Receive Date: 20210709
  Receipt Date: 20210709
  Transmission Date: 20211014
  Serious: Yes (Other)
  Sender: FDA-Public Use
  Company Number: JP-PFIZER INC-2021778111

PATIENT
  Age: 34 Year
  Sex: Male

DRUGS (2)
  1. METHOTREXATE SODIUM. [Suspect]
     Active Substance: METHOTREXATE SODIUM
     Indication: ACUTE GRAFT VERSUS HOST DISEASE
     Dosage: UNK  (CONVENTIONAL SHORT?TERM)
  2. CYCLOSPORINE A [Suspect]
     Active Substance: CYCLOSPORINE
     Indication: ACUTE GRAFT VERSUS HOST DISEASE IN INTESTINE
     Dosage: 3MG/KG, DAILY
     Route: 042

REACTIONS (3)
  - Graft versus host disease in skin [Recovered/Resolved]
  - Drug ineffective [Recovered/Resolved]
  - Graft versus host disease in gastrointestinal tract [Recovered/Resolved]
